FAERS Safety Report 5571160-4 (Version None)
Quarter: 2007Q4

REPORT INFORMATION
  Report Type: 
  Country: None (occurrence: None)
  Receive Date: 20071221
  Receipt Date: 20070119
  Transmission Date: 20080405
  Serious: No
  Sender: FDA-Public Use
  Company Number: A0630295A

PATIENT
  Age: 77 Year
  Sex: Female
  Weight: 70.5 kg

DRUGS (12)
  1. FLUTICASONE PROPIONATE [Suspect]
     Dosage: 2SPR PER DAY
     Route: 045
     Dates: start: 20060821
  2. DIOVAN [Concomitant]
  3. PERSANTINE [Concomitant]
  4. NORVASC [Concomitant]
  5. ALLOPURINOL [Concomitant]
  6. SECTRAL [Concomitant]
  7. LASIX [Concomitant]
  8. AGRYLIN [Concomitant]
  9. HYDROCHLOROTHIAZIDE [Concomitant]
  10. XANAX [Concomitant]
  11. AMBIEN [Concomitant]
  12. ASPIRIN [Concomitant]

REACTIONS (2)
  - DRUG INEFFECTIVE [None]
  - PHARMACEUTICAL PRODUCT COMPLAINT [None]
